FAERS Safety Report 18867429 (Version 2)
Quarter: 2021Q1

REPORT INFORMATION
  Report Type: Spontaneous
  Country: AU (occurrence: AU)
  Receive Date: 20210209
  Receipt Date: 20210219
  Transmission Date: 20210420
  Serious: Yes (Hospitalization)
  Sender: FDA-Public Use
  Company Number: AU-PFIZER INC-2015201808

PATIENT
  Age: 25 Year
  Sex: Female
  Weight: 61 kg

DRUGS (8)
  1. INDOMETHACIN. [Concomitant]
     Active Substance: INDOMETHACIN
     Indication: TOCOLYSIS
     Dosage: 50 MG, UNK
     Route: 054
  2. BUPIVACAINE AND ADRENALIN [Concomitant]
     Active Substance: BUPIVACAINE HYDROCHLORIDE\EPINEPHRINE
     Dosage: UNK
  3. PROPOFOL. [Concomitant]
     Active Substance: PROPOFOL
     Dosage: 100 MG, BOLUS
     Route: 042
  4. FENTANYL. [Concomitant]
     Active Substance: FENTANYL
     Indication: SEDATION
     Dosage: 100UG, TOTAL (INCREMENTAL DOSES)
     Route: 042
  5. MIDAZOLAM. [Concomitant]
     Active Substance: MIDAZOLAM
     Indication: SEDATION
     Dosage: 5 MG, TOTAL (INCREMENTAL DOSES)
     Route: 042
  6. PROPOFOL. [Concomitant]
     Active Substance: PROPOFOL
     Indication: SEDATION
     Dosage: 5 MG/KG/HOUR
     Route: 042
  7. BACTERIOSTATIC SODIUM CHLORIDE [Suspect]
     Active Substance: SODIUM CHLORIDE
     Dosage: UNK
  8. SUXAMETHONIUM [Concomitant]
     Active Substance: SUCCINYLCHOLINE
     Indication: SEDATION
     Dosage: 100 MG, UNK
     Route: 042

REACTIONS (2)
  - Metabolic acidosis [Recovered/Resolved]
  - Pulmonary oedema [Recovered/Resolved]
